FAERS Safety Report 19179276 (Version 4)
Quarter: 2021Q2

REPORT INFORMATION
  Report Type: Report from Study
  Country: US (occurrence: US)
  Receive Date: 20210426
  Receipt Date: 20210626
  Transmission Date: 20210717
  Serious: Yes (Other)
  Sender: FDA-Public Use
  Company Number: US-TAKEDA-US202025194

PATIENT
  Sex: Female

DRUGS (1)
  1. HUMAN NORMAL IMMUNOGLOBULIN; LIQUID [Suspect]
     Active Substance: HUMAN IMMUNOGLOBULIN G
     Indication: PRIMARY IMMUNODEFICIENCY SYNDROME
     Dosage: UNK
     Route: 058

REACTIONS (17)
  - Rheumatoid arthritis [Unknown]
  - Chronic fatigue syndrome [Unknown]
  - Therapy interrupted [Unknown]
  - Autoimmune disorder [Unknown]
  - Fibromyalgia [Unknown]
  - Exostosis [Unknown]
  - Malaise [Unknown]
  - Injection site bruising [Unknown]
  - Inflammation [Unknown]
  - Dysphonia [Unknown]
  - Muscle strain [Unknown]
  - Sjogren^s syndrome [Recovered/Resolved]
  - Joint swelling [Unknown]
  - Arthralgia [Unknown]
  - Peripheral swelling [Unknown]
  - Polyarthritis [Unknown]
  - Sinusitis [Unknown]
